FAERS Safety Report 5232300-X (Version None)
Quarter: 2007Q1

REPORT INFORMATION
  Report Type: 
  Country: None (occurrence: None)
  Receive Date: 20070205
  Receipt Date: 20070123
  Transmission Date: 20070707
  Serious: Yes (Other)
  Sender: FDA-Public Use
  Company Number: 230001K07DEU

PATIENT
  Age: 40 Year
  Sex: Male
  Weight: 64 kg

DRUGS (2)
  1. REBIF [Suspect]
     Indication: MULTIPLE SCLEROSIS
     Dosage: SEE IMAGE
     Route: 058
     Dates: start: 19970101, end: 20001001
  2. REBIF [Suspect]
     Indication: MULTIPLE SCLEROSIS
     Dosage: SEE IMAGE
     Route: 058
     Dates: start: 20001101

REACTIONS (9)
  - HYPERTHERMIA [None]
  - INDURATION [None]
  - INJECTION SITE ABSCESS [None]
  - INJECTION SITE INFLAMMATION [None]
  - INJECTION SITE REACTION [None]
  - MALAISE [None]
  - PATHOGEN RESISTANCE [None]
  - PURULENCE [None]
  - STAPHYLOCOCCAL INFECTION [None]
